FAERS Safety Report 5513121-7 (Version None)
Quarter: 2007Q4

REPORT INFORMATION
  Report Type: 
  Country: None (occurrence: None)
  Receive Date: 20071112
  Receipt Date: 20071108
  Transmission Date: 20080405
  Serious: Yes (Other)
  Sender: FDA-Public Use
  Company Number: US-JNJFOC-20070800256

PATIENT
  Age: 49 Year
  Sex: Female
  Weight: 120.2 kg

DRUGS (4)
  1. TYLENOL (CAPLET) [Suspect]
     Route: 048
  2. TYLENOL (CAPLET) [Suspect]
     Indication: BACK PAIN
     Dosage: 1300 MG DAILY FOR 3 DAYS, THEN DECREASED TO 650 MG FOR 3 DAYS ON TWO SEPARATE OCCASIONS
     Route: 048
  3. LOTREL [Concomitant]
     Indication: HYPERTENSION
  4. CAMPRAL [Concomitant]
     Indication: WEIGHT DECREASED
     Dosage: ^7 MONTHS^

REACTIONS (3)
  - NERVOUSNESS [None]
  - SUICIDAL IDEATION [None]
  - TEARFULNESS [None]
